FAERS Safety Report 6917618-4 (Version None)
Quarter: 2010Q3

REPORT INFORMATION
  Report Type: 
  Country: None (occurrence: None)
  Receive Date: 20100810
  Receipt Date: 20100713
  Transmission Date: 20110219
  Serious: No
  Sender: FDA-Public Use
  Company Number: US-JNJFOC-20100704882

PATIENT
  Age: 62 Year
  Sex: Male

DRUGS (4)
  1. INVEGA [Suspect]
     Indication: SCHIZOAFFECTIVE DISORDER
     Route: 048
  2. INVEGA [Suspect]
     Route: 048
  3. HALDOL [Suspect]
     Indication: SCHIZOAFFECTIVE DISORDER
     Route: 030
  4. HALDOL [Suspect]
     Route: 030

REACTIONS (6)
  - ASTHENIA [None]
  - DECREASED APPETITE [None]
  - GAIT DISTURBANCE [None]
  - MEMORY IMPAIRMENT [None]
  - TREMOR [None]
  - WEIGHT DECREASED [None]
